FAERS Safety Report 21891552 (Version 3)
Quarter: 2023Q1

REPORT INFORMATION
  Report Type: Spontaneous
  Country: GB (occurrence: GB)
  Receive Date: 20230120
  Receipt Date: 20230316
  Transmission Date: 20230418
  Serious: Yes (Hospitalization, Other)
  Sender: FDA-Public Use
  Company Number: GB-MHRA-MED-202301101043136670-LWKTZ

PATIENT
  Age: 7 Year
  Sex: Female
  Weight: 22 kg

DRUGS (4)
  1. ELEXACAFTOR\IVACAFTOR\TEZACAFTOR [Suspect]
     Active Substance: ELEXACAFTOR\IVACAFTOR\TEZACAFTOR
     Indication: Cystic fibrosis
     Dosage: (75 MG IVACAFTOR/ 50 MG TEZACAFTOR/ 100 MG ELEXACAFTOR AND 75 MG IVACAFTOR), UNK FREQ
     Route: 048
     Dates: start: 202206, end: 202301
  2. CEPHRADINE [Concomitant]
     Active Substance: CEPHRADINE
     Indication: Cystic fibrosis
  3. CREON [Concomitant]
     Active Substance: PANCRELIPASE AMYLASE\PANCRELIPASE LIPASE\PANCRELIPASE PROTEASE
     Indication: Cystic fibrosis
  4. SODIUM CHLORIDE [Concomitant]
     Active Substance: SODIUM CHLORIDE
     Indication: Cystic fibrosis

REACTIONS (5)
  - Idiopathic intracranial hypertension [Recovering/Resolving]
  - VIth nerve paralysis [Recovering/Resolving]
  - Pseudomonas infection [Unknown]
  - Pharyngeal erythema [Unknown]
  - Viral upper respiratory tract infection [Unknown]

NARRATIVE: CASE EVENT DATE: 20221201
